FAERS Safety Report 6936312-7 (Version None)
Quarter: 2010Q3

REPORT INFORMATION
  Report Type: 
  Country: None (occurrence: None)
  Receive Date: 20100823
  Receipt Date: 20100813
  Transmission Date: 20110219
  Serious: Yes (Hospitalization)
  Sender: FDA-Public Use
  Company Number: US-SANOFI-AVENTIS-2010SA048734

PATIENT
  Age: 92 Year
  Sex: Female

DRUGS (1)
  1. LANTUS [Suspect]
     Dosage: INSULIN GLARGINE TAKEN FOR 1 YEAR AND 9 MONTHS DOSE:15 UNIT(S)
     Route: 058

REACTIONS (5)
  - BLOOD GLUCOSE INCREASED [None]
  - PNEUMONIA [None]
  - SOMNOLENCE [None]
  - URINARY TRACT INFECTION [None]
  - VISION BLURRED [None]
